FAERS Safety Report 9753043 (Version 1)
Quarter: 2013Q4

REPORT INFORMATION
  Report Type: Spontaneous
  Country: CA (occurrence: CA)
  Receive Date: 20131213
  Receipt Date: 20131213
  Transmission Date: 20140711
  Serious: Yes (Other)
  Sender: FDA-Public Use
  Company Number: CA-PFIZER INC-2013352426

PATIENT
  Sex: Male

DRUGS (1)
  1. ADVIL NIGHTTIME [Suspect]
     Dosage: UNK

REACTIONS (7)
  - Hypersensitivity [Unknown]
  - Swollen tongue [Unknown]
  - Dysphagia [Unknown]
  - Pharyngeal oedema [Unknown]
  - Lymphadenopathy [Unknown]
  - Ear swelling [Unknown]
  - Headache [Unknown]
